FAERS Safety Report 6315459-2 (Version None)
Quarter: 2009Q3

REPORT INFORMATION
  Report Type: 
  Country: None (occurrence: None)
  Receive Date: 20090819
  Receipt Date: 20090805
  Transmission Date: 20100115
  Serious: Yes (Hospitalization)
  Sender: FDA-Public Use
  Company Number: TW-MYLANLABS-2009S1013910

PATIENT
  Age: 35 Year
  Sex: Male

DRUGS (2)
  1. PHENYTOIN [Suspect]
     Indication: POST-TRAUMATIC EPILEPSY
     Dosage: 200MG TWICE DAILY
     Route: 048
  2. RIFATER [Suspect]
     Indication: PULMONARY TUBERCULOSIS

REACTIONS (4)
  - BRADYCARDIA [None]
  - DRUG INTERACTION [None]
  - HYPOTENSION [None]
  - OVERDOSE [None]
